FAERS Safety Report 9803031 (Version 2)
Quarter: 2014Q1

REPORT INFORMATION
  Report Type: Spontaneous
  Country: BR (occurrence: BR)
  Receive Date: 20140108
  Receipt Date: 20140205
  Transmission Date: 20141002
  Serious: Yes (Disabling, Other)
  Sender: FDA-Public Use
  Company Number: BR-JNJFOC-20131217169

PATIENT
  Sex: Male

DRUGS (3)
  1. TYLEX [Suspect]
     Indication: PAIN
     Route: 065
  2. LYRICA [Suspect]
     Indication: PAIN
     Route: 065
  3. CELEBRA [Suspect]
     Indication: PAIN
     Route: 065

REACTIONS (9)
  - Nervous system disorder [Unknown]
  - Activities of daily living impaired [Unknown]
  - General physical health deterioration [Unknown]
  - Knee operation [Unknown]
  - Blood pressure increased [Unknown]
  - Palpitations [Unknown]
  - Mood altered [Unknown]
  - Local swelling [Unknown]
  - Drug ineffective [Unknown]
